FAERS Safety Report 7793700-7 (Version None)
Quarter: 2011Q4

REPORT INFORMATION
  Report Type: 
  Country: None (occurrence: None)
  Receive Date: 20111003
  Receipt Date: 20110926
  Transmission Date: 20120403
  Serious: Yes (Other)
  Sender: FDA-Public Use
  Company Number: DE-AMGEN-DEUSP2011045315

PATIENT
  Age: 72 Year
  Sex: Female
  Weight: 80 kg

DRUGS (5)
  1. ASPIRIN [Concomitant]
     Indication: ATRIAL FIBRILLATION
     Dosage: 100 UNK, UNK
     Route: 048
  2. RAMIPRIL BETA [Concomitant]
  3. METOHEXAL                          /00376902/ [Concomitant]
     Indication: ATRIAL FIBRILLATION
  4. PANTOPRAZOL                        /01263202/ [Concomitant]
  5. PROLIA [Suspect]
     Indication: OSTEOPOROSIS POSTMENOPAUSAL
     Dosage: 5 MG, UNK
     Route: 058
     Dates: start: 20110901

REACTIONS (9)
  - DIARRHOEA [None]
  - INFLUENZA LIKE ILLNESS [None]
  - ASTHENIA [None]
  - PAIN IN EXTREMITY [None]
  - BEDRIDDEN [None]
  - HEADACHE [None]
  - SCIATICA [None]
  - FATIGUE [None]
  - ARTHRALGIA [None]
